FAERS Safety Report 5727850-3 (Version None)
Quarter: 2008Q2

REPORT INFORMATION
  Report Type: 
  Country: None (occurrence: None)
  Receive Date: 20080501
  Receipt Date: 20080102
  Transmission Date: 20081010
  Serious: Yes (Other)
  Sender: FDA-Public Use
  Company Number: PHEH2008US00443

PATIENT
  Sex: Male

DRUGS (1)
  1. LOTREL [Suspect]
     Dates: start: 20070101

REACTIONS (1)
  - PANCREATITIS [None]
